FAERS Safety Report 8352855-6 (Version None)
Quarter: 2012Q2

REPORT INFORMATION
  Report Type: 
  Country: None (occurrence: None)
  Receive Date: 20120511
  Receipt Date: 20120430
  Transmission Date: 20120825
  Serious: Yes (Hospitalization, Other)
  Sender: FDA-Public Use
  Company Number: US-ELI_LILLY_AND_COMPANY-US201205000642

PATIENT
  Age: 50 Year
  Sex: Male

DRUGS (1)
  1. CYMBALTA [Suspect]
     Indication: PAIN
     Dosage: 60 MG, QD
     Dates: start: 20090101, end: 20120401

REACTIONS (13)
  - NAUSEA [None]
  - INSOMNIA [None]
  - PARALYSIS [None]
  - HYPERHIDROSIS [None]
  - CELLULITIS [None]
  - DRUG WITHDRAWAL SYNDROME [None]
  - NEUROMYELITIS OPTICA [None]
  - ANXIETY [None]
  - DISORIENTATION [None]
  - FEELING JITTERY [None]
  - DYSPNOEA [None]
  - PANIC ATTACK [None]
  - CENTRAL NERVOUS SYSTEM LESION [None]
